FAERS Safety Report 20548746 (Version 1)
Quarter: 2022Q1

REPORT INFORMATION
  Report Type: Spontaneous
  Country: US (occurrence: US)
  Receive Date: 20220303
  Receipt Date: 20220303
  Transmission Date: 20220423
  Serious: No
  Sender: FDA-Public Use
  Company Number: US-ABBVIE-21K-163-4121100-00

PATIENT

DRUGS (1)
  1. TESTOSTERONE [Suspect]
     Active Substance: TESTOSTERONE
     Indication: Infertility
     Dosage: 1 PERCENT  HALF PACKET DAILY
     Route: 061

REACTIONS (2)
  - Off label use [Unknown]
  - Poor quality product administered [Unknown]
